FAERS Safety Report 4686552-5 (Version None)
Quarter: 2005Q2

REPORT INFORMATION
  Report Type: 
  Country: None (occurrence: None)
  Receive Date: 20050606
  Receipt Date: 20050519
  Transmission Date: 20051028
  Serious: Yes (Hospitalization)
  Sender: FDA-Public Use
  Company Number: USA050496653

PATIENT
  Age: 47 Year
  Sex: Male

DRUGS (4)
  1. CYMBALTA [Suspect]
     Indication: DEPRESSION
     Dosage: 30 MG DAY
     Dates: start: 20050301, end: 20050301
  2. ADDERALL [Concomitant]
  3. LEXAPRO [Concomitant]
  4. CLONAPIN (CLONAZEPAM) [Concomitant]

REACTIONS (6)
  - COGNITIVE DISORDER [None]
  - DYSARTHRIA [None]
  - EYELID DISORDER [None]
  - GAIT DISTURBANCE [None]
  - HEMIPARESIS [None]
  - HYPOAESTHESIA [None]
